FAERS Safety Report 14370888 (Version 1)
Quarter: 2018Q1

REPORT INFORMATION
  Report Type: Spontaneous
  Country: FR (occurrence: FR)
  Receive Date: 20180110
  Receipt Date: 20180110
  Transmission Date: 20180509
  Serious: Yes (Hospitalization)
  Sender: FDA-Public Use
  Company Number: FR-SUN PHARMACEUTICAL INDUSTRIES LTD-2018US-159312

PATIENT
  Age: 46 Year
  Sex: Female
  Weight: 62 kg

DRUGS (3)
  1. EURARTESIM 320 MG/40 MG, COMPRIME PELLICULE [Suspect]
     Active Substance: ARTENIMOL\PIPERAQUINE PHOSPHATE
     Indication: PLASMODIUM FALCIPARUM INFECTION
     Dosage: UNK
     Route: 048
     Dates: start: 20171017, end: 20171018
  2. MALACEF 60MG, POUDRE ET SOLVANT POUR SOLUTION INJECTABLE [Suspect]
     Active Substance: ARTESUNATE
     Indication: PLASMODIUM FALCIPARUM INFECTION
     Dosage: 150 MG, UNK
     Route: 042
     Dates: start: 20171014, end: 20171016
  3. PARACETAMOL [Suspect]
     Active Substance: ACETAMINOPHEN
     Indication: PLASMODIUM FALCIPARUM INFECTION
     Dosage: SI BESOIN
     Route: 065

REACTIONS (2)
  - Hepatocellular injury [Recovering/Resolving]
  - Condition aggravated [Recovering/Resolving]

NARRATIVE: CASE EVENT DATE: 20171019
